FAERS Safety Report 7361629-4 (Version None)
Quarter: 2011Q1

REPORT INFORMATION
  Report Type: 
  Country: None (occurrence: None)
  Receive Date: 20110318
  Receipt Date: 20110315
  Transmission Date: 20110831
  Serious: Yes (Other)
  Sender: FDA-Public Use
  Company Number: US-PFIZER INC-2011012338

PATIENT

DRUGS (7)
  1. CLONAZEPAM [Concomitant]
     Dosage: 1 MG, 2X/DAY
  2. TOPAMAX [Concomitant]
     Dosage: 100 MG, 2X/DAY
  3. VISTARIL [Concomitant]
     Dosage: 50 MG, EVERY 6 HOURS AS NEEDED
     Route: 048
  4. GEODON [Suspect]
     Indication: POST-TRAUMATIC STRESS DISORDER
  5. CLOMIPRAMINE [Concomitant]
     Dosage: 100 MG, 1X/DAY AT BEDTIME
  6. LEVOTHYROXINE [Concomitant]
  7. GEODON [Suspect]
     Indication: ANXIETY
     Dosage: 60 MG, 2X/DAY
     Route: 048
     Dates: start: 20101123, end: 20110215

REACTIONS (4)
  - PARAESTHESIA [None]
  - PAIN [None]
  - HYPOAESTHESIA [None]
  - NEUROPATHY PERIPHERAL [None]
